FAERS Safety Report 4295476-7 (Version None)
Quarter: 2004Q1

REPORT INFORMATION
  Report Type: 
  Country: None (occurrence: None)
  Receive Date: 20040211
  Receipt Date: 20040128
  Transmission Date: 20041129
  Serious: Yes (Hospitalization)
  Sender: FDA-Public Use
  Company Number: 2003-BP-05918NB

PATIENT
  Age: 61 Year
  Sex: Male

DRUGS (14)
  1. MEXITIL [Suspect]
     Indication: DIABETIC NEUROPATHY
     Dosage: 300 MG, PO
     Route: 048
     Dates: start: 20030527
  2. HERBESSER R (KAR) [Suspect]
     Indication: MYOCARDIAL INFARCTION
     Dosage: 100 MG, PO
     Route: 048
     Dates: start: 20030509
  3. TEGRETOL [Suspect]
     Indication: DIABETIC NEUROPATHY
     Dosage: 100 MG, PO
     Route: 048
     Dates: start: 20030603, end: 20030704
  4. BAYASPIRIN (TAR) [Concomitant]
  5. GASTER D (TA) [Concomitant]
  6. ALDACTONE [Concomitant]
  7. LASIX [Concomitant]
  8. ARTIST (TA) [Concomitant]
  9. NU-LOTAN (TA) [Concomitant]
  10. INNOLET 30R (AM) [Concomitant]
  11. LOXONIN (LOXOPROFEN SODIUM) (NR) [Concomitant]
  12. HUSCODE (HUSCODE) (NR) [Concomitant]
  13. KAKKON-TO (HERBAL MEDICINE) (NR) [Concomitant]
  14. KLARICID (CLARITHROMYCIN) (NR) [Concomitant]

REACTIONS (11)
  - ANTIBODY TEST POSITIVE [None]
  - DEPRESSED LEVEL OF CONSCIOUSNESS [None]
  - HEPATOSPLENOMEGALY [None]
  - HUMAN HERPES VIRUS 6 SEROLOGY POSITIVE [None]
  - LIVER DISORDER [None]
  - LYMPHOCYTE STIMULATION TEST POSITIVE [None]
  - MENINGITIS VIRAL [None]
  - PYREXIA [None]
  - RASH [None]
  - RENAL FAILURE ACUTE [None]
  - SOMNOLENCE [None]
